FAERS Safety Report 5850439-2 (Version None)
Quarter: 2008Q3

REPORT INFORMATION
  Report Type: 
  Country: None (occurrence: None)
  Receive Date: 20080819
  Receipt Date: 20080807
  Transmission Date: 20090109
  Serious: Yes (Other)
  Sender: FDA-Public Use
  Company Number: US-PFIZER INC-2007091497

PATIENT
  Age: 80 Year
  Sex: Female

DRUGS (7)
  1. NEURONTIN [Suspect]
     Indication: NEUROPATHY PERIPHERAL
  2. NEURONTIN [Suspect]
  3. LYRICA [Suspect]
     Indication: NEUROPATHY PERIPHERAL
  4. CATAPRES [Suspect]
     Indication: BLOOD PRESSURE
  5. ALL OTHER THERAPEUTIC PRODUCTS [Suspect]
     Indication: BLOOD PRESSURE
  6. ANTIHYPERTENSIVES [Concomitant]
  7. ANTIDEPRESSANTS [Concomitant]

REACTIONS (16)
  - AGITATION [None]
  - CONFUSIONAL STATE [None]
  - DIARRHOEA [None]
  - DRY MOUTH [None]
  - GAIT DISTURBANCE [None]
  - HYPERTENSION [None]
  - MUSCLE INJURY [None]
  - NEUROPATHY PERIPHERAL [None]
  - OEDEMA PERIPHERAL [None]
  - PAIN [None]
  - PARAESTHESIA [None]
  - THERAPEUTIC PROCEDURE [None]
  - THROMBOSIS [None]
  - VISION BLURRED [None]
  - WEIGHT DECREASED [None]
  - WEIGHT INCREASED [None]
